FAERS Safety Report 6198355-3 (Version None)
Quarter: 2009Q2

REPORT INFORMATION
  Report Type: 
  Country: None (occurrence: None)
  Receive Date: 20090521
  Receipt Date: 20090515
  Transmission Date: 20091009
  Serious: Yes (Other)
  Sender: FDA-Public Use
  Company Number: JP-AVENTIS-200911050JP

PATIENT
  Age: 62 Year
  Sex: Female
  Weight: 56 kg

DRUGS (3)
  1. LANTUS [Suspect]
     Indication: TYPE 1 DIABETES MELLITUS
     Dosage: DOSE: 8 UNITS
     Route: 058
     Dates: start: 20090220, end: 20090410
  2. LEVEMIR [Concomitant]
     Indication: TYPE 1 DIABETES MELLITUS
     Dosage: DOSE: 7UNITS + 8 UNITS
  3. NOVORAPID [Concomitant]
     Indication: TYPE 1 DIABETES MELLITUS
     Dosage: DOSE: 24 UNITS(8-8-8-0)
     Route: 058
     Dates: end: 20090410

REACTIONS (1)
  - HALLUCINATION [None]
